FAERS Safety Report 4354429-0 (Version None)
Quarter: 2004Q2

REPORT INFORMATION
  Report Type: 
  Country: None (occurrence: None)
  Receive Date: 20040503
  Receipt Date: 20040102
  Transmission Date: 20050107
  Serious: Yes (Other)
  Sender: FDA-Public Use
  Company Number: PHEH2003US10473

PATIENT
  Age: 56 Year
  Sex: Female
  Weight: 86.2 kg

DRUGS (3)
  1. LOTREL [Suspect]
     Indication: HYPERTENSION
     Dosage: 1 CAPSULE/QD, ORAL
     Route: 048
     Dates: start: 20001206, end: 20031108
  2. PREMPRO [Concomitant]
  3. EFFEXOR XR [Concomitant]

REACTIONS (1)
  - ANGIONEUROTIC OEDEMA [None]
